FAERS Safety Report 9363919 (Version 1)
Quarter: 2013Q2

REPORT INFORMATION
  Report Type: Spontaneous
  Country: GB (occurrence: None)
  Receive Date: 20130618
  Receipt Date: 20130618
  Transmission Date: 20140414
  Serious: Yes (Hospitalization, Other)
  Sender: FDA-Public Use
  Company Number: AUR-APL-2013-04855

PATIENT
  Age: 77 Year
  Sex: Male
  Weight: 52.9 kg

DRUGS (5)
  1. ALENDRONIC ACID (ALENDRONIC ACID) [Suspect]
     Indication: PRODUCT USED FOR UNKNOWN INDICATION
     Route: 048
     Dates: start: 20120330, end: 20130505
  2. CLOPIDOGREL [Concomitant]
  3. FOLIC ACID [Concomitant]
  4. FUROSEMIDE [Concomitant]
  5. OMEPRAZOLE [Concomitant]

REACTIONS (4)
  - Abdominal pain [None]
  - Haematemesis [None]
  - Anaemia [None]
  - Oesophageal ulcer [None]
